FAERS Safety Report 6400157-7 (Version None)
Quarter: 2009Q4

REPORT INFORMATION
  Report Type: 
  Country: None (occurrence: None)
  Receive Date: 20091014
  Receipt Date: 20091005
  Transmission Date: 20100525
  Serious: Yes (Death)
  Sender: FDA-Public Use
  Company Number: GB-ROCHE-660414

PATIENT
  Age: 73 Year
  Sex: Female

DRUGS (3)
  1. TAMIFLU [Suspect]
     Indication: DRUG USE FOR UNKNOWN INDICATION
     Route: 065
     Dates: start: 20090724
  2. FLUOROURACIL [Concomitant]
     Dosage: REPORTED THAT THE PATIENT HAD TAKEN 5FU NEOADJUVANT CHEMO
  3. CISPLATIN [Concomitant]
     Dosage: REPORTED THAT CISPLATIN WAS NEOADJUVANT CHEMO

REACTIONS (1)
  - VOMITING [None]
